FAERS Safety Report 21510531 (Version 1)
Quarter: 2022Q4

REPORT INFORMATION
  Report Type: Report from Study
  Country: US (occurrence: US)
  Receive Date: 20221026
  Receipt Date: 20221026
  Transmission Date: 20230112
  Serious: Yes (Hospitalization)
  Sender: FDA-Public Use
  Company Number: US-JAZZ-2022-US-007717

PATIENT
  Sex: Female

DRUGS (24)
  1. XYREM [Suspect]
     Active Substance: SODIUM OXYBATE
     Indication: Narcolepsy
     Dosage: 2.25 GRAM, BID
     Route: 048
     Dates: start: 200811, end: 200812
  2. XYREM [Suspect]
     Active Substance: SODIUM OXYBATE
     Indication: Cataplexy
     Dosage: DOSE ADJUSTMENT
     Route: 048
     Dates: start: 200812, end: 202007
  3. XYREM [Suspect]
     Active Substance: SODIUM OXYBATE
     Indication: Somnolence
     Dosage: 3.75 GRAM, BID
     Route: 048
     Dates: start: 202007
  4. IBUPROFEN IB [Concomitant]
     Active Substance: IBUPROFEN
     Dosage: CAPLET, OTH
     Dates: start: 20080101
  5. BUPROPION HYDROCHLORIDE [Concomitant]
     Active Substance: BUPROPION HYDROCHLORIDE
     Dosage: 0000
     Dates: start: 20010101
  6. VITAMIN E + MAGNESIUM [Concomitant]
     Dosage: 1,000 UNITS
     Dates: start: 20080101
  7. RETINOL [Concomitant]
     Active Substance: RETINOL
     Dosage: 8000 UNIT
     Dates: start: 20080101
  8. MINERALS\VITAMINS [Concomitant]
     Active Substance: MINERALS\VITAMINS
     Dosage: 2 SOFTGEL
     Dates: start: 20160118
  9. LIPITOR [Concomitant]
     Active Substance: ATORVASTATIN CALCIUM
     Dosage: UNK
     Dates: start: 20170901
  10. POTASSIUM CHLORIDE [Concomitant]
     Active Substance: POTASSIUM CHLORIDE
     Dosage: 20 MEQ TABLET
     Dates: start: 20170901
  11. ELIQUIS [Concomitant]
     Active Substance: APIXABAN
     Dosage: 5 MG
     Dates: start: 20170901
  12. ELIQUIS [Concomitant]
     Active Substance: APIXABAN
     Dosage: 2.5
     Dates: start: 20200211
  13. COREG [Concomitant]
     Active Substance: CARVEDILOL
     Dosage: 25 MG OTH
     Dates: start: 20171220
  14. COREG [Concomitant]
     Active Substance: CARVEDILOL
     Dosage: 12.5  MG
     Dates: start: 20200211
  15. WELLBUTRIN XL [Concomitant]
     Active Substance: BUPROPION HYDROCHLORIDE
     Dosage: QD
     Dates: start: 20171101
  16. KLOR-CON M10 [Concomitant]
     Active Substance: POTASSIUM CHLORIDE
     Dosage: QD
     Dates: start: 20171101
  17. OYSCO 500+D [Concomitant]
     Dosage: 200T AB
     Dates: start: 20171101
  18. FUROSEMIDE [Concomitant]
     Active Substance: FUROSEMIDE
     Dosage: 40 MG
     Dates: start: 20171101
  19. FUROSEMIDE [Concomitant]
     Active Substance: FUROSEMIDE
     Dosage: 20 MG
     Dates: start: 20181102
  20. CARDIZEM [Concomitant]
     Active Substance: DILTIAZEM HYDROCHLORIDE
     Dosage: UNK
     Dates: start: 20180501
  21. ACETAMINOPHEN [Concomitant]
     Active Substance: ACETAMINOPHEN
     Dosage: CAPLET
     Dates: start: 20180501
  22. AMLODIPINE BESYLATE [Concomitant]
     Active Substance: AMLODIPINE BESYLATE
     Dosage: UNK
     Dates: start: 20180501
  23. NITROSTAT [Concomitant]
     Active Substance: NITROGLYCERIN
     Dosage: 0000
     Dates: start: 20181102
  24. TYLENOL [Concomitant]
     Active Substance: ACETAMINOPHEN
     Dosage: CAPLET

REACTIONS (5)
  - Infection [Unknown]
  - Asthenia [Unknown]
  - Behaviour disorder [Unknown]
  - Rehabilitation therapy [Unknown]
  - Product administration interrupted [Unknown]
